FAERS Safety Report 5884465-4 (Version None)
Quarter: 2008Q3

REPORT INFORMATION
  Report Type: 
  Country: None (occurrence: None)
  Receive Date: 20080916
  Receipt Date: 20080903
  Transmission Date: 20090109
  Serious: Yes (Other)
  Sender: FDA-Public Use
  Company Number: DE-RANBAXY-2008RR-17825

PATIENT

DRUGS (5)
  1. ENALAPRIL 2.5MG BASICS [Suspect]
     Indication: HYPERTENSION
     Dosage: 20 MG, QD
     Dates: start: 20080301, end: 20080706
  2. ENALAPRIL 2.5MG BASICS [Suspect]
     Dosage: 2560 MG, UNK
     Dates: start: 20080301, end: 20080706
  3. AMLODIPINE [Concomitant]
     Indication: HYPERTENSION
     Dosage: 5 MG, UNK
     Route: 048
     Dates: start: 20080301
  4. ESTRAMUSTIN [Concomitant]
     Indication: PROSTATE CANCER
     Dosage: 720 MG, QD
     Dates: start: 20080620
  5. ESTRAMUSTIN [Concomitant]
     Dosage: 12240 MG, UNK
     Dates: start: 20080620

REACTIONS (4)
  - LARYNGEAL OEDEMA [None]
  - OEDEMA MOUTH [None]
  - SENSATION OF FOREIGN BODY [None]
  - TONGUE OEDEMA [None]
